FAERS Safety Report 5775999-1 (Version None)
Quarter: 2008Q2

REPORT INFORMATION
  Report Type: 
  Country: None (occurrence: None)
  Receive Date: 20080617
  Receipt Date: 20080609
  Transmission Date: 20081010
  Serious: Yes (Death, Other)
  Sender: FDA-Public Use
  Company Number: JP-ABBOTT-08P-087-0454338-00

PATIENT
  Age: 73 Year
  Sex: Male
  Weight: 52 kg

DRUGS (10)
  1. LEUPLIN SR FOR INJECTION KIT [Suspect]
     Indication: PROSTATE CANCER STAGE IV
     Route: 058
     Dates: start: 20060306, end: 20070521
  2. MORPHINE HCL ELIXIR [Concomitant]
     Indication: METASTASES TO BONE
     Route: 048
     Dates: start: 20070709, end: 20070717
  3. BICALUTAMIDE [Concomitant]
     Indication: PROSTATE CANCER STAGE IV
     Route: 048
     Dates: start: 20061211, end: 20070430
  4. CHLORMADINONE ACETATE TAB [Concomitant]
     Indication: PROSTATE CANCER STAGE IV
     Route: 048
     Dates: start: 20060123, end: 20070401
  5. ESTRAMUSTINE PHOSPHATE SODIUM [Concomitant]
     Indication: PROSTATE CANCER STAGE IV
     Route: 048
     Dates: start: 20070402, end: 20070430
  6. DEXAMETHASONE TAB [Concomitant]
     Indication: PROSTATE CANCER STAGE IV
     Route: 048
     Dates: start: 20070515, end: 20071105
  7. CYCLOPHOSPHAMIDE [Concomitant]
     Indication: PROSTATE CANCER STAGE IV
     Route: 048
     Dates: start: 20070521, end: 20070603
  8. ZOLEDRONIC ACID [Concomitant]
     Indication: PROSTATE CANCER STAGE IV
     Route: 042
     Dates: start: 20070621, end: 20071011
  9. OXYCODONE HCL [Concomitant]
     Indication: METASTASES TO BONE
     Route: 048
     Dates: start: 20070713, end: 20071011
  10. NAFTOPIDIL [Concomitant]
     Indication: DYSURIA
     Route: 048
     Dates: start: 20060306, end: 20070610

REACTIONS (4)
  - ANOREXIA [None]
  - DEPRESSION [None]
  - METASTASES TO BONE [None]
  - PROSTATE CANCER STAGE IV [None]
